FAERS Safety Report 7079188-2 (Version None)
Quarter: 2010Q4

REPORT INFORMATION
  Report Type: 
  Country: None (occurrence: None)
  Receive Date: 20101102
  Receipt Date: 20101020
  Transmission Date: 20110411
  Serious: Yes (Congenital Anomaly)
  Sender: FDA-Public Use
  Company Number: B0631549B

PATIENT
  Sex: Male
  Weight: 3.7 kg

DRUGS (2)
  1. PAROXETINE HCL [Suspect]
     Indication: MAJOR DEPRESSION
     Dates: start: 20091020, end: 20100111
  2. MGO [Concomitant]
     Indication: CONSTIPATION
     Dates: start: 20091116, end: 20100111

REACTIONS (2)
  - CRYPTORCHISM [None]
  - DRUG EXPOSURE DURING PREGNANCY [None]
